FAERS Safety Report 9711008 (Version 2)
Quarter: 2013Q4

REPORT INFORMATION
  Report Type: Spontaneous
  Country: US (occurrence: US)
  Receive Date: 20131126
  Receipt Date: 20131126
  Transmission Date: 20140711
  Serious: No
  Sender: FDA-Public Use
  Company Number: US-BRISTOL-MYERS SQUIBB COMPANY-18583096

PATIENT
  Age: 60 Year
  Sex: Female
  Weight: 95.24 kg

DRUGS (3)
  1. BYDUREON [Suspect]
     Indication: TYPE 2 DIABETES MELLITUS
     Route: 058
     Dates: start: 201209
  2. PAXIL [Concomitant]
     Dosage: 1DF= ONE AND HALF TAB
  3. LAMOTRIGINE [Concomitant]
     Indication: CONVULSION

REACTIONS (2)
  - Headache [Recovered/Resolved]
  - Weight decreased [Recovered/Resolved]
